FAERS Safety Report 18467710 (Version 1)
Quarter: 2020Q4

REPORT INFORMATION
  Report Type: Spontaneous
  Country: US (occurrence: US)
  Receive Date: 20201104
  Receipt Date: 20201104
  Transmission Date: 20210114
  Serious: Yes (Hospitalization)
  Sender: FDA-Public Use
  Company Number: None

PATIENT
  Age: 90 Year
  Sex: Male
  Weight: 72 kg

DRUGS (1)
  1. SULFAMETHIZOLE/TRIMETHOPRIM (SULFAMETHIZOLE 800MG/TRIMETHOPRIM 160MG TAB) [Suspect]
     Active Substance: SULFAMETHIZOLE\TRIMETHOPRIM
     Indication: CELLULITIS
     Route: 048
     Dates: start: 20200816, end: 20200819

REACTIONS (8)
  - Peripheral swelling [None]
  - Condition aggravated [None]
  - Erythema multiforme [None]
  - Rash [None]
  - Blister [None]
  - Skin weeping [None]
  - Hypotension [None]
  - Oedema peripheral [None]

NARRATIVE: CASE EVENT DATE: 20200815
